FAERS Safety Report 5299257-7 (Version None)
Quarter: 2007Q2

REPORT INFORMATION
  Report Type: 
  Country: None (occurrence: None)
  Receive Date: 20070417
  Receipt Date: 20070327
  Transmission Date: 20071010
  Serious: Yes (Other)
  Sender: FDA-Public Use
  Company Number: PHNR2007AU00981

PATIENT
  Sex: Male
  Weight: 2.2 kg

DRUGS (1)
  1. GLEEVEC [Suspect]
     Route: 065

REACTIONS (3)
  - PREMATURE BABY [None]
  - TRANSMISSION OF DRUG VIA SEMEN [None]
  - UMBILICAL CORD AROUND NECK [None]
